FAERS Safety Report 23505120 (Version 1)
Quarter: 2024Q1

REPORT INFORMATION
  Report Type: Spontaneous
  Country: US (occurrence: None)
  Receive Date: 20240208
  Receipt Date: 20240208
  Transmission Date: 20240409
  Serious: Yes (Disabling)
  Sender: FDA-Public Use
  Company Number: None

PATIENT
  Age: 30 Year
  Sex: Female
  Weight: 67.5 kg

DRUGS (14)
  1. MOXIFLOXACIN [Suspect]
     Active Substance: MOXIFLOXACIN
     Indication: Ureaplasma infection
     Dosage: OTHER QUANTITY : 7 TABLET(S);?FREQUENCY : DAILY;?
     Route: 048
     Dates: start: 20240201, end: 20240207
  2. MOXIFLOXACIN [Suspect]
     Active Substance: MOXIFLOXACIN
     Indication: Mycoplasma infection
  3. SYMBICORT [Concomitant]
     Active Substance: BUDESONIDE\FORMOTEROL FUMARATE DIHYDRATE
  4. VERAPAMIL [Concomitant]
     Active Substance: VERAPAMIL HYDROCHLORIDE
  5. ATIVAN [Concomitant]
     Active Substance: LORAZEPAM
  6. ASTELIN [Concomitant]
     Active Substance: AZELASTINE HYDROCHLORIDE
  7. BACLOFEN [Concomitant]
     Active Substance: BACLOFEN
  8. LEVALBUTEROL [Concomitant]
     Active Substance: LEVALBUTEROL
  9. IRON [Concomitant]
     Active Substance: IRON
  10. MAGNESIUM [Concomitant]
     Active Substance: MAGNESIUM
  11. dha and fish oil [Concomitant]
  12. cranberry and d mannose [Concomitant]
  13. probiotic 50bil [Concomitant]
  14. NASACORT [Concomitant]
     Active Substance: TRIAMCINOLONE ACETONIDE

REACTIONS (13)
  - Decreased appetite [None]
  - Nausea [None]
  - Abdominal pain upper [None]
  - Pain [None]
  - Respiratory disorder [None]
  - Nasal congestion [None]
  - Paranasal sinus discomfort [None]
  - Sneezing [None]
  - Tendon pain [None]
  - Hypoaesthesia [None]
  - Paraesthesia [None]
  - Tremor [None]
  - Anxiety [None]

NARRATIVE: CASE EVENT DATE: 20240203
